FAERS Safety Report 9450982 (Version 1)
Quarter: 2013Q3

REPORT INFORMATION
  Report Type: Spontaneous
  Country: RO (occurrence: RO)
  Receive Date: 20130809
  Receipt Date: 20130809
  Transmission Date: 20140515
  Serious: Yes (Other)
  Sender: FDA-Public Use
  Company Number: RO-ASTRAZENECA-2013SE60210

PATIENT
  Age: 55 Year
  Sex: Female
  Weight: 57 kg

DRUGS (1)
  1. CRESTOR [Suspect]
     Indication: DYSLIPIDAEMIA
     Route: 048
     Dates: start: 201009, end: 201305

REACTIONS (2)
  - Myalgia [Recovered/Resolved]
  - Activities of daily living impaired [Recovered/Resolved]
